FAERS Safety Report 4410680-2 (Version None)
Quarter: 2004Q3

REPORT INFORMATION
  Report Type: 
  Country: None (occurrence: None)
  Receive Date: 20040726
  Receipt Date: 20040713
  Transmission Date: 20050211
  Serious: Yes (Other)
  Sender: FDA-Public Use
  Company Number: 2004047204

PATIENT
  Age: 69 Year
  Sex: Male
  Weight: 117.9352 kg

DRUGS (8)
  1. LIPITOR [Suspect]
     Indication: BLOOD CHOLESTEROL
     Dosage: 10 MG (10 MG, 1 IN 1 D), ORAL
     Route: 048
     Dates: start: 19970101
  2. NORVASC [Suspect]
     Indication: HYPERTENSION
     Dosage: 5 MG (5 MG, 1 IN 1 D), ORAL
     Route: 048
     Dates: start: 19970101, end: 20040401
  3. CLOPIDOGREL BISULFATE [Concomitant]
  4. FOLIC ACID [Concomitant]
  5. FOSINOPRIL SODIUM [Concomitant]
  6. EZETIMIBE (EZETIMIBE) [Concomitant]
  7. DUTASTERIDE (DUTASTERIDE) [Concomitant]
  8. LANSOPRAZOLE [Concomitant]

REACTIONS (16)
  - ANEURYSM [None]
  - AORTIC SURGERY [None]
  - ARTERIAL OCCLUSIVE DISEASE [None]
  - ARTERIAL REPAIR [None]
  - ARTHRALGIA [None]
  - ARTHROPATHY [None]
  - ASTHENIA [None]
  - BLOOD CHOLESTEROL INCREASED [None]
  - BLOOD PRESSURE INADEQUATELY CONTROLLED [None]
  - CARDIAC PACEMAKER INSERTION [None]
  - DIZZINESS [None]
  - MUSCLE CRAMP [None]
  - MUSCULAR WEAKNESS [None]
  - MYALGIA [None]
  - PROCEDURAL COMPLICATION [None]
  - STENT PLACEMENT [None]
